FAERS Safety Report 25684956 (Version 3)
Quarter: 2025Q3

REPORT INFORMATION
  Report Type: Spontaneous
  Country: EU (occurrence: EU)
  Receive Date: 20250815
  Receipt Date: 20250930
  Transmission Date: 20251021
  Serious: Yes (Hospitalization, Other)
  Sender: BAUSCH AND LOMB
  Company Number: EU-BAUSCH-BH-2025-015979

PATIENT
  Age: 39 Year
  Sex: Male

DRUGS (26)
  1. DIAZEPAM [Suspect]
     Active Substance: DIAZEPAM
     Indication: Mixed anxiety and depressive disorder
     Route: 065
  2. DIAZEPAM [Suspect]
     Active Substance: DIAZEPAM
     Indication: Self-medication
     Route: 065
  3. CITALOPRAM [Suspect]
     Active Substance: CITALOPRAM
     Indication: Mental disorder
     Route: 065
  4. CITALOPRAM [Suspect]
     Active Substance: CITALOPRAM
     Indication: Anxiety disorder
  5. CITALOPRAM [Suspect]
     Active Substance: CITALOPRAM
     Indication: Depression
  6. HYDROXYZINE [Suspect]
     Active Substance: HYDROXYZINE HYDROCHLORIDE
     Indication: Mental disorder
     Route: 065
  7. HYDROXYZINE [Suspect]
     Active Substance: HYDROXYZINE HYDROCHLORIDE
     Indication: Anxiety disorder
  8. HYDROXYZINE [Suspect]
     Active Substance: HYDROXYZINE HYDROCHLORIDE
     Indication: Depression
  9. ALPRAZOLAM [Suspect]
     Active Substance: ALPRAZOLAM
     Indication: Mixed anxiety and depressive disorder
     Route: 065
  10. ALPRAZOLAM [Suspect]
     Active Substance: ALPRAZOLAM
     Indication: Self-medication
     Dosage: 1 TO 1.5 MG
     Route: 065
  11. ALPRAZOLAM [Suspect]
     Active Substance: ALPRAZOLAM
     Route: 065
  12. ALPRAZOLAM [Suspect]
     Active Substance: ALPRAZOLAM
     Route: 065
  13. NANDROLONE DECANOATE [Suspect]
     Active Substance: NANDROLONE DECANOATE
     Indication: Steroid therapy
     Route: 065
  14. NANDROLONE DECANOATE [Suspect]
     Active Substance: NANDROLONE DECANOATE
     Indication: Supplementation therapy
  15. TESTOSTERONE [Suspect]
     Active Substance: TESTOSTERONE
     Indication: Supplementation therapy
     Route: 065
  16. CABERGOLINE [Suspect]
     Active Substance: CABERGOLINE
     Indication: Supplementation therapy
     Route: 065
  17. ANASTROZOLE [Suspect]
     Active Substance: ANASTROZOLE
     Indication: Performance enhancing product use
     Route: 065
  18. ANASTROZOLE [Suspect]
     Active Substance: ANASTROZOLE
     Route: 065
  19. TRAZODONE [Suspect]
     Active Substance: TRAZODONE HYDROCHLORIDE
     Indication: Anxiety disorder
     Route: 065
  20. TRAZODONE [Suspect]
     Active Substance: TRAZODONE HYDROCHLORIDE
     Indication: Depression
  21. TELMISARTAN [Suspect]
     Active Substance: TELMISARTAN
     Indication: Product used for unknown indication
     Route: 065
  22. TELMISARTAN [Concomitant]
     Active Substance: TELMISARTAN
     Indication: Product used for unknown indication
  23. TESTOSTERONE [Concomitant]
     Active Substance: TESTOSTERONE
     Indication: Performance enhancing product use
  24. NANDROLONE [Concomitant]
     Active Substance: NANDROLONE
     Indication: Performance enhancing product use
  25. CABERGOLINE [Concomitant]
     Active Substance: CABERGOLINE
     Indication: Performance enhancing product use
  26. ANASTROZOLE [Concomitant]
     Active Substance: ANASTROZOLE
     Indication: Product used for unknown indication

REACTIONS (19)
  - Performance enhancing product use [Unknown]
  - Postprandial hypoglycaemia [Unknown]
  - Andropause [Unknown]
  - Secondary hypogonadism [Unknown]
  - Androgen deficiency [Unknown]
  - Peptic ulcer [Unknown]
  - Andropause [Unknown]
  - Drug abuse [Unknown]
  - Hypertension [Unknown]
  - Chest pain [Unknown]
  - Irritable bowel syndrome [Unknown]
  - Blood triglycerides increased [Unknown]
  - Chest discomfort [Unknown]
  - Ulcer [Unknown]
  - Laboratory test abnormal [Unknown]
  - Performance enhancing product use [Unknown]
  - Self-medication [Unknown]
  - Drug ineffective [Unknown]
  - Prescription drug used without a prescription [Unknown]
